FAERS Safety Report 8367324-7 (Version None)
Quarter: 2012Q2

REPORT INFORMATION
  Report Type: 
  Country: None (occurrence: None)
  Receive Date: 20120517
  Receipt Date: 20120515
  Transmission Date: 20120825
  Serious: Yes (Life-Threatening, Hospitalization, Other)
  Sender: FDA-Public Use
  Company Number: FI-NOVOPROD-339261

PATIENT
  Age: 58 Year
  Sex: Male
  Weight: 118.5 kg

DRUGS (2)
  1. METFORMIN HCL [Concomitant]
     Indication: TYPE 2 DIABETES MELLITUS
     Dosage: 3000 MG, QD
     Dates: start: 20031201
  2. LIRAGLUTIDE FLEXPEN [Suspect]
     Indication: TYPE 2 DIABETES MELLITUS
     Dosage: 1.8 MG, QD
     Route: 058
     Dates: start: 20110831, end: 20111105

REACTIONS (17)
  - PLEURAL EFFUSION [None]
  - DIARRHOEA [None]
  - NAUSEA [None]
  - SHOCK [None]
  - PANCREATITIS [None]
  - HEPATOMEGALY [None]
  - RENAL CYST [None]
  - RENAL FAILURE [None]
  - LIPASE INCREASED [None]
  - CONVULSION [None]
  - PH URINE INCREASED [None]
  - CARDIOMEGALY [None]
  - HEPATIC STEATOSIS [None]
  - AMYLASE INCREASED [None]
  - ABDOMINAL PAIN [None]
  - BACK PAIN [None]
  - RESPIRATORY RATE INCREASED [None]
